FAERS Safety Report 22347792 (Version 4)
Quarter: 2023Q4

REPORT INFORMATION
  Report Type: Report from Study
  Country: CN (occurrence: CN)
  Receive Date: 20230522
  Receipt Date: 20231116
  Transmission Date: 20240110
  Serious: Yes (Hospitalization, Other)
  Sender: FDA-Public Use
  Company Number: CN-BRISTOL-MYERS SQUIBB COMPANY-2023-069205

PATIENT
  Age: 35 Year
  Sex: Male
  Weight: 61.3 kg

DRUGS (8)
  1. AZACITIDINE [Suspect]
     Active Substance: AZACITIDINE
     Indication: Acute myeloid leukaemia
     Dosage: DAYS 1-5 OF EACH 28 DAY
     Route: 058
     Dates: start: 20230213, end: 20230225
  2. VENETOCLAX [Suspect]
     Active Substance: VENETOCLAX
     Indication: Acute myeloid leukaemia
     Dosage: EVERY 1 DAYS
     Route: 048
     Dates: start: 20230213, end: 20230403
  3. COMBINED CLOSTRIDIUM BUTYRICUM AND BIFIDOBACTERIUM CAPSULES, LIVE [Concomitant]
     Indication: Probiotic therapy
     Dosage: 1 G, AS NECESSARY
     Dates: start: 20230220, end: 20230505
  4. LEUCOGEN [Concomitant]
     Active Substance: LEUCOGEN
     Indication: Platelet count decreased
     Dates: start: 20230323, end: 20230505
  5. ACYCLOVIR [Concomitant]
     Active Substance: ACYCLOVIR
     Indication: Platelet count decreased
     Dates: start: 20230105, end: 20230505
  6. CYCLOSPORINE [Concomitant]
     Active Substance: CYCLOSPORINE
     Indication: Immunosuppression
     Dates: start: 20230412, end: 20230505
  7. HEROMBOPAG OLAMINE [Concomitant]
     Indication: Hypercoagulation
     Dates: start: 20230426, end: 20230505
  8. SULFAMETHOXAZOLE [Concomitant]
     Active Substance: SULFAMETHOXAZOLE
     Indication: Antifungal prophylaxis
     Dosage: 0.96 G, EVERY 2 DAYS
     Dates: start: 20221214, end: 20230505

REACTIONS (2)
  - Platelet count decreased [Not Recovered/Not Resolved]
  - Haemorrhage subcutaneous [Recovered/Resolved]

NARRATIVE: CASE EVENT DATE: 20230501
